FAERS Safety Report 8984275 (Version 1)
Quarter: 2012Q4

REPORT INFORMATION
  Report Type: Report from Study
  Country: CA (occurrence: CA)
  Receive Date: 20121226
  Receipt Date: 20121226
  Transmission Date: 20130627
  Serious: Yes (Other)
  Sender: FDA-Public Use
  Company Number: CA-JNJFOC-20121209597

PATIENT
  Age: 39 Year
  Sex: Female
  Weight: 59 kg

DRUGS (2)
  1. REMICADE [Suspect]
     Indication: CROHN^S DISEASE
     Route: 042
     Dates: start: 2008
  2. REMICADE [Suspect]
     Indication: CROHN^S DISEASE
     Dosage: 80 cc/hr
     Route: 042
     Dates: start: 20121214

REACTIONS (4)
  - Chest discomfort [Unknown]
  - Infusion related reaction [Unknown]
  - Flushing [Unknown]
  - White blood cell count increased [Unknown]
